FAERS Safety Report 12649309 (Version 1)
Quarter: 2016Q3

REPORT INFORMATION
  Report Type: Spontaneous
  Country: US (occurrence: US)
  Receive Date: 20160812
  Receipt Date: 20160812
  Transmission Date: 20161109
  Serious: Yes (Other)
  Sender: FDA-Public Use
  Company Number: US-TEVA-682061USA

PATIENT
  Sex: Female

DRUGS (13)
  1. BACLOFEN. [Concomitant]
     Active Substance: BACLOFEN
  2. SERTRALINE [Concomitant]
     Active Substance: SERTRALINE HYDROCHLORIDE
  3. ARICEPT [Concomitant]
     Active Substance: DONEPEZIL HYDROCHLORIDE
  4. BUPROPION. [Concomitant]
     Active Substance: BUPROPION
  5. TRAZODONE [Concomitant]
     Active Substance: TRAZODONE HYDROCHLORIDE
  6. GABAPENTIN. [Concomitant]
     Active Substance: GABAPENTIN
  7. SIMVASTATIN. [Concomitant]
     Active Substance: SIMVASTATIN
  8. DILTIAZEM. [Concomitant]
     Active Substance: DILTIAZEM
  9. CLONAZEPAM. [Concomitant]
     Active Substance: CLONAZEPAM
  10. DIAZEPAM. [Concomitant]
     Active Substance: DIAZEPAM
  11. REFRESH [Concomitant]
     Active Substance: UNSPECIFIED INGREDIENT
  12. COPAXONE [Suspect]
     Active Substance: GLATIRAMER ACETATE
     Indication: MULTIPLE SCLEROSIS
     Route: 058
     Dates: start: 20141120
  13. OMEPRAZOLE. [Concomitant]
     Active Substance: OMEPRAZOLE

REACTIONS (2)
  - Drug dose omission [Unknown]
  - Shoulder operation [Unknown]

NARRATIVE: CASE EVENT DATE: 2016
